FAERS Safety Report 18308347 (Version 1)
Quarter: 2020Q3

REPORT INFORMATION
  Report Type: Spontaneous
  Country: US (occurrence: US)
  Receive Date: 20200924
  Receipt Date: 20200924
  Transmission Date: 20201103
  Serious: No
  Sender: FDA-Public Use
  Company Number: US-ELI_LILLY_AND_COMPANY-US202002000630

PATIENT
  Age: 46 Year

DRUGS (1)
  1. VERZENIO [Suspect]
     Active Substance: ABEMACICLIB
     Indication: BREAST CANCER METASTATIC
     Dosage: UNK UNK, UNKNOWN
     Route: 065

REACTIONS (5)
  - Rash [Recovered/Resolved]
  - Fatigue [Unknown]
  - Diarrhoea [Recovering/Resolving]
  - White blood cell count abnormal [Unknown]
  - Alopecia [Unknown]
